FAERS Safety Report 4544684-6 (Version None)
Quarter: 2004Q4

REPORT INFORMATION
  Report Type: 
  Country: None (occurrence: None)
  Receive Date: 20041230
  Receipt Date: 20041221
  Transmission Date: 20050328
  Serious: Yes (Hospitalization)
  Sender: FDA-Public Use
  Company Number: 2004UW25945

PATIENT
  Age: 92 Year
  Sex: Male

DRUGS (3)
  1. CASODEX [Suspect]
     Indication: PROSTATE CANCER
     Dosage: 50 MG DAILY PO
     Route: 048
     Dates: start: 20020808
  2. PALAFER [Concomitant]
  3. TRIVITAN [Concomitant]

REACTIONS (3)
  - FAILURE TO THRIVE [None]
  - HYPERGLYCAEMIA [None]
  - UROSEPSIS [None]
